FAERS Safety Report 9844974 (Version 1)
Quarter: 2014Q1

REPORT INFORMATION
  Report Type: Spontaneous
  Country: US (occurrence: US)
  Receive Date: 20140127
  Receipt Date: 20140127
  Transmission Date: 20141002
  Serious: Yes (Other)
  Sender: FDA-Public Use
  Company Number: US-MYLANLABS-2014S1001066

PATIENT
  Age: 66 Year
  Sex: Female

DRUGS (1)
  1. MELPHALAN [Suspect]
     Indication: LEIOMYOSARCOMA METASTATIC
     Dosage: 3 MG/KG
     Route: 013

REACTIONS (2)
  - Thrombocytopenia [Recovered/Resolved]
  - Neutropenia [Recovered/Resolved]
